FAERS Safety Report 9741335 (Version 1)
Quarter: 2013Q4

REPORT INFORMATION
  Report Type: Spontaneous
  Country: US (occurrence: US)
  Receive Date: 20131209
  Receipt Date: 20131209
  Transmission Date: 20140711
  Serious: Yes (Hospitalization)
  Sender: FDA-Public Use
  Company Number: US-TEVA-449965USA

PATIENT
  Age: 25 Year
  Sex: Male

DRUGS (1)
  1. FENTANYL [Suspect]
     Route: 045

REACTIONS (4)
  - Confusional state [Recovered/Resolved]
  - Somnolence [Recovered/Resolved]
  - Lethargy [Recovered/Resolved]
  - Drug abuse [Unknown]
